FAERS Safety Report 9096672 (Version 2)
Quarter: 2013Q1

REPORT INFORMATION
  Report Type: Spontaneous
  Country: BR (occurrence: BR)
  Receive Date: 20130211
  Receipt Date: 20130328
  Transmission Date: 20140127
  Serious: Yes (Life-Threatening, Hospitalization, Other)
  Sender: FDA-Public Use
  Company Number: BR-MILLENNIUM PHARMACEUTICALS, INC.-2013-00998

PATIENT
  Sex: 0

DRUGS (5)
  1. VELCADE [Suspect]
     Indication: PLASMA CELL MYELOMA
     Dosage: 1.1 UNK, UNK
     Route: 065
     Dates: start: 20121115, end: 20121203
  2. CYCLOPHOSPHAMIDE [Concomitant]
     Indication: PLASMA CELL MYELOMA
     Dosage: 261 MG, UNK
     Dates: start: 20121115, end: 20121203
  3. DEXAMETHASONE [Concomitant]
     Indication: PLASMA CELL MYELOMA
     Dosage: 40 MG, UNK
     Dates: start: 20121115, end: 20121203
  4. ACYCLOVIR                          /00587301/ [Concomitant]
     Indication: PROPHYLAXIS
     Dosage: 400 MG, UNK
     Dates: start: 20121115
  5. SULFAMETHOXAZOLE AND TRIMETHOPRIM [Concomitant]
     Indication: PROPHYLAXIS
     Dosage: UNK
     Dates: start: 20121115

REACTIONS (8)
  - Pancreatitis [Recovered/Resolved]
  - Off label use [Recovered/Resolved]
  - Medication error [Recovered/Resolved]
  - Abdominal pain [Recovered/Resolved]
  - Diarrhoea [Recovered/Resolved]
  - Amylase increased [Recovered/Resolved]
  - Lipase increased [Recovered/Resolved]
  - Vomiting [Recovered/Resolved]
